FAERS Safety Report 5693467-2 (Version None)
Quarter: 2008Q2

REPORT INFORMATION
  Report Type: 
  Country: None (occurrence: None)
  Receive Date: 20080402
  Receipt Date: 20080402
  Transmission Date: 20081010
  Serious: Yes (Hospitalization)
  Sender: FDA-Public Use
  Company Number: None

PATIENT
  Sex: Female
  Weight: 73.4 kg

DRUGS (2)
  1. FLUDARABINE PHOSPHATE [Suspect]
     Indication: ACUTE MYELOID LEUKAEMIA
     Dosage: 63MG 5 DAYS IV
     Route: 042
     Dates: start: 20080214, end: 20080218
  2. CYCLOPHOSPHAMIDE [Suspect]
     Indication: ACUTE MYELOID LEUKAEMIA
     Dosage: 1.8G 2 DAYS IV
     Route: 042
     Dates: start: 20080219, end: 20080220

REACTIONS (5)
  - DIARRHOEA [None]
  - ILL-DEFINED DISORDER [None]
  - NAUSEA [None]
  - PYREXIA [None]
  - VOMITING [None]
